FAERS Safety Report 8616171-7 (Version None)
Quarter: 2012Q3

REPORT INFORMATION
  Report Type: 
  Country: None (occurrence: None)
  Receive Date: 20120823
  Receipt Date: 20120822
  Transmission Date: 20120928
  Serious: Yes (Other)
  Sender: FDA-Public Use
  Company Number: PL-BAYER-2012-087128

PATIENT
  Age: 60 Year
  Sex: Female
  Weight: 78 kg

DRUGS (2)
  1. ULTRAVIST 150 [Suspect]
     Indication: ARTERIOGRAM CORONARY
     Dosage: UNK
     Route: 022
     Dates: start: 20120820, end: 20120820
  2. ULTRAVIST 150 [Suspect]
     Indication: ACUTE MYOCARDIAL INFARCTION

REACTIONS (2)
  - RHINITIS SEASONAL [None]
  - DYSPNOEA [None]
